FAERS Safety Report 6884197-X (Version None)
Quarter: 2010Q3

REPORT INFORMATION
  Report Type: 
  Country: None (occurrence: None)
  Receive Date: 20100729
  Receipt Date: 20070605
  Transmission Date: 20110219
  Serious: No
  Sender: FDA-Public Use
  Company Number: US-PFIZER INC-2007047121

PATIENT
  Sex: Male
  Weight: 91 kg

DRUGS (9)
  1. CELEBREX [Suspect]
     Indication: MENISCUS LESION
     Dates: start: 20070501
  2. GEMFIBROZIL [Concomitant]
  3. METFORMIN HCL [Concomitant]
  4. DYAZIDE [Concomitant]
  5. LISINOPRIL [Concomitant]
  6. LOVASTATIN [Concomitant]
  7. AVANDIA [Concomitant]
  8. ATENOLOL [Concomitant]
  9. ALL OTHER THERAPEUTIC PRODUCTS [Concomitant]

REACTIONS (1)
  - EJACULATION FAILURE [None]
